FAERS Safety Report 7285262-8 (Version None)
Quarter: 2011Q1

REPORT INFORMATION
  Report Type: 
  Country: None (occurrence: None)
  Receive Date: 20110210
  Receipt Date: 20110201
  Transmission Date: 20110831
  Serious: Yes (Other)
  Sender: FDA-Public Use
  Company Number: US-SANOFI-AVENTIS-2011SA000721

PATIENT
  Age: 68 Year
  Sex: Female
  Weight: 61 kg

DRUGS (4)
  1. COUMADIN [Concomitant]
     Dosage: 5 TIMES A WEEK
  2. IBANDRONIC ACID [Concomitant]
  3. MULTAQ [Suspect]
     Indication: ATRIAL FIBRILLATION
     Route: 065
     Dates: start: 20100301, end: 20110104
  4. METOPROLOL [Concomitant]

REACTIONS (2)
  - ATRIAL FIBRILLATION [None]
  - HEPATOCELLULAR INJURY [None]
